FAERS Safety Report 7094725-X (Version None)
Quarter: 2010Q4

REPORT INFORMATION
  Report Type: 
  Country: None (occurrence: None)
  Receive Date: 20101110
  Receipt Date: 20090120
  Transmission Date: 20110411
  Serious: No
  Sender: FDA-Public Use
  Company Number: US-KINGPHARMUSA00001-K200900068

PATIENT
  Sex: Female

DRUGS (2)
  1. INTAL [Suspect]
     Indication: ASTHMA
     Dosage: 2 PUFFS, QID
  2. XOPENEX [Concomitant]
     Dosage: UNK

REACTIONS (1)
  - DRUG INEFFECTIVE [None]
